FAERS Safety Report 5772803-2 (Version None)
Quarter: 2008Q2

REPORT INFORMATION
  Report Type: 
  Country: None (occurrence: None)
  Receive Date: 20080611
  Receipt Date: 20080527
  Transmission Date: 20081010
  Serious: Yes (Hospitalization)
  Sender: FDA-Public Use
  Company Number: 2008S1007034

PATIENT
  Age: 50 Year
  Sex: Female
  Weight: 77 kg

DRUGS (15)
  1. BEVACIZUMAB [Suspect]
     Indication: COLON CANCER
     Dosage: 372.5 MG; INTRAVENOUS
     Route: 042
     Dates: start: 20070815
  2. OXALIPLATIN [Suspect]
     Indication: COLON CANCER
     Dosage: 372.5 MG; INTRAVENOUS : 154.7 MG; INTRAVENOUS : 118.3 MG; INTRAVENOUS
     Route: 042
     Dates: start: 20070815, end: 20070815
  3. OXALIPLATIN [Suspect]
     Indication: COLON CANCER
     Dosage: 372.5 MG; INTRAVENOUS : 154.7 MG; INTRAVENOUS : 118.3 MG; INTRAVENOUS
     Route: 042
     Dates: start: 20070914
  4. LEUCOVORIN /00566701/ [Suspect]
     Indication: COLON CANCER
     Dosage: 728 MG; INTRAVENOUS
     Route: 042
     Dates: start: 20070815
  5. FLUOROURACIL [Suspect]
     Indication: COLON CANCER
     Dosage: SEE IMAGE
     Route: 042
     Dates: start: 20070815, end: 20070815
  6. FLUOROURACIL [Suspect]
     Indication: COLON CANCER
     Dosage: SEE IMAGE
     Route: 042
     Dates: start: 20070815, end: 20070815
  7. FLUOROURACIL [Suspect]
     Indication: COLON CANCER
     Dosage: SEE IMAGE
     Route: 042
     Dates: start: 20070914
  8. FLUOROURACIL [Suspect]
     Indication: COLON CANCER
     Dosage: SEE IMAGE
     Route: 042
     Dates: start: 20070914
  9. LISINOPRIL [Suspect]
     Indication: HYPERTENSION
     Dosage: 20 MG;DAILY;ORAL
     Route: 048
     Dates: start: 19970225
  10. ATENOLOL [Suspect]
     Indication: HYPERTENSION
     Dosage: 50 MG;DAILY;ORAL
     Route: 048
     Dates: start: 20070808
  11. CLONIDINE HCL [Suspect]
     Dosage: 0.1 MG;TWICE A DAY;ORAL
     Route: 048
     Dates: start: 20070809
  12. HYDROCODONE [Concomitant]
  13. ASCORBIC ACID [Concomitant]
  14. VITAMIN E [Concomitant]
  15. MUTIVITAMIN [Concomitant]

REACTIONS (5)
  - CARCINOID SYNDROME [None]
  - HEART RATE DECREASED [None]
  - HOT FLUSH [None]
  - MENOPAUSE [None]
  - ORTHOSTATIC HYPOTENSION [None]
